FAERS Safety Report 10068476 (Version 1)
Quarter: 2014Q2

REPORT INFORMATION
  Report Type: Spontaneous
  Country: US (occurrence: US)
  Receive Date: 20140409
  Receipt Date: 20140409
  Transmission Date: 20141212
  Serious: Yes (Hospitalization, Other)
  Sender: FDA-Public Use
  Company Number: US-ASTRAZENECA-2014SE22642

PATIENT
  Sex: Male

DRUGS (6)
  1. ENTOCORT  EC [Suspect]
     Route: 048
  2. HUMIRA [Suspect]
  3. CIMZIA [Suspect]
  4. 6-MP [Suspect]
  5. REMICADE [Suspect]
  6. PREDNISONE [Suspect]
     Dosage: MULTIPLE ROUNDS

REACTIONS (9)
  - Intestinal ulcer [Unknown]
  - Abdominal adhesions [Unknown]
  - Intestinal stenosis [Unknown]
  - Bone disorder [Recovering/Resolving]
  - Arthropathy [Recovering/Resolving]
  - Skin disorder [Recovering/Resolving]
  - Cardiac disorder [Recovering/Resolving]
  - Pain [Recovered/Resolved]
  - Adverse event [Not Recovered/Not Resolved]
